FAERS Safety Report 17468522 (Version 2)
Quarter: 2020Q1

REPORT INFORMATION
  Report Type: Report from Study
  Country: None (occurrence: US)
  Receive Date: 20200227
  Receipt Date: 20200227
  Transmission Date: 20200409
  Serious: Yes (Other)
  Sender: FDA-Public Use
  Company Number: US-ABBVIE-20K-163-3293868-00

PATIENT
  Age: 32 Year
  Sex: Female

DRUGS (1)
  1. HUMIRA [Suspect]
     Active Substance: ADALIMUMAB
     Indication: CROHN^S DISEASE
     Dosage: CITRATE FREE
     Route: 058
     Dates: start: 20191210

REACTIONS (3)
  - Injection site pruritus [Not Recovered/Not Resolved]
  - Injection site erythema [Recovering/Resolving]
  - Female genital tract fistula [Recovering/Resolving]

NARRATIVE: CASE EVENT DATE: 20200201
